FAERS Safety Report 24112745 (Version 2)
Quarter: 2024Q3

REPORT INFORMATION
  Report Type: Spontaneous
  Country: JP (occurrence: JP)
  Receive Date: 20240719
  Receipt Date: 20240806
  Transmission Date: 20241017
  Serious: Yes (Hospitalization)
  Sender: DAIICHI
  Company Number: JP-DSJP-DSJ-2024-135541

PATIENT
  Age: 73 Year
  Sex: Female

DRUGS (2)
  1. ENHERTU [Suspect]
     Active Substance: FAM-TRASTUZUMAB DERUXTECAN-NXKI
     Indication: HER2 low breast cancer
     Dosage: UNK, TOTAL 10 COURSES
     Route: 041
  2. ERIBULIN [Concomitant]
     Active Substance: ERIBULIN
     Indication: HER2 low breast cancer
     Dosage: UNK
     Route: 065

REACTIONS (1)
  - Hypercalcaemia [Unknown]
